FAERS Safety Report 13182045 (Version 2)
Quarter: 2017Q2

REPORT INFORMATION
  Report Type: Spontaneous
  Country: US (occurrence: US)
  Receive Date: 20170202
  Receipt Date: 20170502
  Transmission Date: 20170830
  Serious: No
  Sender: FDA-Public Use
  Company Number: US-IMPAX LABORATORIES, INC-2017-IPXL-00042

PATIENT
  Sex: Female

DRUGS (1)
  1. RYTARY [Suspect]
     Active Substance: CARBIDOPA\LEVODOPA
     Indication: PARKINSON^S DISEASE
     Dosage: 48.75/195MG; 1 CAPSULE 3 TIMES A DAY
     Route: 065
     Dates: end: 201612

REACTIONS (3)
  - Insomnia [Recovered/Resolved]
  - Aggression [Recovered/Resolved]
  - Constipation [Recovered/Resolved]
